FAERS Safety Report 7554577-8 (Version None)
Quarter: 2011Q2

REPORT INFORMATION
  Report Type: 
  Country: None (occurrence: None)
  Receive Date: 20110617
  Receipt Date: 20110608
  Transmission Date: 20111010
  Serious: Yes (Hospitalization)
  Sender: FDA-Public Use
  Company Number: CA-ROCHE-781863

PATIENT
  Age: 78 Year
  Sex: Male
  Weight: 80 kg

DRUGS (4)
  1. XELODA [Suspect]
     Dosage: CYCLICAL
     Route: 048
  2. ELOXATIN [Suspect]
     Route: 042
  3. CILAZAPRIL/HYDROCHLOROTHIAZIDE [Concomitant]
  4. NORVASC [Concomitant]

REACTIONS (6)
  - ANAEMIA HAEMOLYTIC AUTOIMMUNE [None]
  - HAEMATURIA [None]
  - RENAL FAILURE ACUTE [None]
  - BLOOD UREA INCREASED [None]
  - OLIGURIA [None]
  - ANURIA [None]
